FAERS Safety Report 8955904 (Version 1)
Quarter: 2012Q4

REPORT INFORMATION
  Report Type: 
  Country: GB (occurrence: GB)
  Receive Date: 20121210
  Receipt Date: 20121210
  Transmission Date: 20130627
  Serious: Yes (Hospitalization)
  Sender: FDA-Public Use
  Company Number: GB-TEVA-373746ISR

PATIENT
  Age: 54 Year

DRUGS (13)
  1. LEVETIRACETAM [Suspect]
     Indication: EPILEPSY
     Dosage: 2 Gram Daily;
     Route: 048
  2. CIPROFLOXACIN [Suspect]
     Dosage: unknown
     Route: 048
     Dates: start: 20121027, end: 20121028
  3. NITROFURANTOIN [Suspect]
     Dosage: 400 Milligram Daily;
     Route: 048
     Dates: start: 20121028, end: 20121029
  4. TRIMETHOPRIM [Suspect]
     Dosage: 400 Milligram Daily;
     Route: 048
     Dates: start: 20121029, end: 20121030
  5. TOPIRAMATE [Concomitant]
     Indication: EPILEPSY
     Dosage: 100 Milligram Daily;
     Route: 048
  6. LOPERAMIDE [Concomitant]
     Dosage: unknown
     Route: 048
     Dates: start: 20121027, end: 20121027
  7. OMEPRAZOLE [Concomitant]
     Dosage: 40 Milligram Daily;
     Route: 040
     Dates: start: 20121030
  8. DOMPERIDONE [Concomitant]
     Dosage: 60 Milligram Daily;
     Route: 048
     Dates: start: 20121030
  9. PARACETAMOL [Concomitant]
     Route: 048
     Dates: start: 20121029
  10. CHLORPHENAMINE [Concomitant]
     Route: 048
     Dates: start: 20121029
  11. CYCLIZINE [Concomitant]
     Dosage: 150 Milligram Daily;
     Dates: start: 20121028, end: 20121030
  12. METOCLOPRAMIDE [Concomitant]
     Dosage: Stat dose after rash noticed
     Dates: start: 20121030, end: 20121030
  13. COLESTYRAMINE [Concomitant]
     Dosage: 4 Gram Daily;
     Dates: start: 20121031

REACTIONS (6)
  - Drug reaction with eosinophilia and systemic symptoms [Unknown]
  - Rash generalised [Recovering/Resolving]
  - Rash pustular [Unknown]
  - Eosinophilia [Unknown]
  - White blood cell count increased [Unknown]
  - Inflammatory marker increased [Unknown]
